FAERS Safety Report 12778424 (Version 2)
Quarter: 2016Q4

REPORT INFORMATION
  Report Type: Report from Study
  Country: None (occurrence: DE)
  Receive Date: 20160926
  Receipt Date: 20161028
  Transmission Date: 20170207
  Serious: Yes (Hospitalization)
  Sender: FDA-Public Use
  Company Number: DE-ABBVIE-16K-062-1734772-00

PATIENT
  Age: 79 Year
  Sex: Female
  Weight: 66 kg

DRUGS (2)
  1. HUMIRA [Suspect]
     Active Substance: ADALIMUMAB
     Indication: RHEUMATOID ARTHRITIS
     Route: 058
     Dates: start: 2009, end: 20160101
  2. MTX [Suspect]
     Active Substance: METHOTREXATE SODIUM
     Indication: PRODUCT USED FOR UNKNOWN INDICATION
     Route: 058
     Dates: start: 198009

REACTIONS (6)
  - Gait disturbance [Recovering/Resolving]
  - Infected skin ulcer [Recovered/Resolved]
  - Impaired healing [Recovered/Resolved]
  - Spinal column stenosis [Recovered/Resolved]
  - Back pain [Recovering/Resolving]
  - Pain in extremity [Unknown]

NARRATIVE: CASE EVENT DATE: 2016
